FAERS Safety Report 6493303-0 (Version None)
Quarter: 2009Q4

REPORT INFORMATION
  Report Type: 
  Country: None (occurrence: None)
  Receive Date: 20091214
  Receipt Date: 20091207
  Transmission Date: 20100525
  Serious: Yes (Hospitalization, Other)
  Sender: FDA-Public Use
  Company Number: JP-ROCHE-598291

PATIENT
  Sex: Female
  Weight: 60.1 kg

DRUGS (4)
  1. TRASTUZUMAB [Suspect]
     Indication: BREAST CANCER METASTATIC
     Dosage: DOSE DECREASED
     Route: 041
     Dates: start: 20080306, end: 20080306
  2. TRASTUZUMAB [Suspect]
     Route: 041
     Dates: start: 20080313, end: 20080605
  3. TRASTUZUMAB [Suspect]
     Route: 041
     Dates: start: 20080626
  4. TAXOTERE [Suspect]
     Indication: BREAST CANCER METASTATIC
     Dosage: DRUG REPORTED AS DOCETAXEL HYDRATE
     Route: 041
     Dates: start: 20080717, end: 20090513

REACTIONS (26)
  - ALOPECIA [None]
  - BLOOD ALBUMIN DECREASED [None]
  - DECREASED APPETITE [None]
  - DEHYDRATION [None]
  - DERMATITIS ALLERGIC [None]
  - DRY SKIN [None]
  - DYSGEUSIA [None]
  - GLOSSITIS [None]
  - HAEMOGLOBIN DECREASED [None]
  - HYPOAESTHESIA [None]
  - LACRIMATION INCREASED [None]
  - MALAISE [None]
  - MYALGIA [None]
  - NAIL DISORDER [None]
  - NASOPHARYNGITIS [None]
  - NAUSEA [None]
  - NEUTROPHIL COUNT DECREASED [None]
  - OEDEMA PERIPHERAL [None]
  - PROTEIN TOTAL DECREASED [None]
  - PYREXIA [None]
  - RASH [None]
  - STOMATITIS [None]
  - VARICOSE VEIN [None]
  - VOMITING [None]
  - WEIGHT DECREASED [None]
  - WHITE BLOOD CELL COUNT DECREASED [None]
